FAERS Safety Report 5280920-9 (Version None)
Quarter: 2007Q1

REPORT INFORMATION
  Report Type: 
  Country: None (occurrence: None)
  Receive Date: 20070329
  Receipt Date: 20070320
  Transmission Date: 20070707
  Serious: Yes (Other)
  Sender: FDA-Public Use
  Company Number: US-ELI_LILLY_AND_COMPANY-US200702000407

PATIENT
  Age: 74 Year
  Sex: Female
  Weight: 49.433 kg

DRUGS (11)
  1. FORTEO [Suspect]
     Indication: OSTEOPOROSIS
     Dosage: 20 UG, DAILY (1/D)
     Dates: start: 20041117, end: 20061028
  2. ASPIRIN [Concomitant]
  3. PLAQUENIL [Concomitant]
  4. ATACAND [Concomitant]
  5. HYDROCHLOROTHIAZIDE [Concomitant]
  6. NORVASC [Concomitant]
  7. LISINOPRIL [Concomitant]
  8. CALTRATE [Concomitant]
  9. VITAMIN D [Concomitant]
  10. MAGNESIUM [Concomitant]
  11. OLUX [Concomitant]

REACTIONS (3)
  - BREAST CANCER [None]
  - FEELING ABNORMAL [None]
  - GAIT DISTURBANCE [None]
